FAERS Safety Report 17107914 (Version 1)
Quarter: 2019Q4

REPORT INFORMATION
  Report Type: Spontaneous
  Country: US (occurrence: US)
  Receive Date: 20191203
  Receipt Date: 20191203
  Transmission Date: 20200122
  Serious: No
  Sender: FDA-Public Use
  Company Number: US-TOLMAR, INC.-19US001032

PATIENT
  Age: 79 Year
  Sex: Male

DRUGS (1)
  1. ELIGARD [Suspect]
     Active Substance: LEUPROLIDE ACETATE
     Indication: PRODUCT USED FOR UNKNOWN INDICATION
     Dosage: 22.5 MG Q 3 MONTHS
     Route: 058

REACTIONS (3)
  - Intercepted product preparation error [None]
  - Syringe issue [None]
  - Product container issue [Unknown]

NARRATIVE: CASE EVENT DATE: 20191107
